FAERS Safety Report 16976790 (Version 10)
Quarter: 2020Q1

REPORT INFORMATION
  Report Type: Report from Study
  Country: JP (occurrence: JP)
  Receive Date: 20191030
  Receipt Date: 20200207
  Transmission Date: 20200409
  Serious: Yes (Hospitalization, Other)
  Sender: FDA-Public Use
  Company Number: JP-BRISTOL-MYERS SQUIBB COMPANY-BMS-2019-103280

PATIENT
  Age: 73 Year
  Sex: Male
  Weight: 59.5 kg

DRUGS (29)
  1. FLUOROURACIL. [Suspect]
     Active Substance: FLUOROURACIL
     Indication: PANCREATIC CARCINOMA
     Dosage: 2400 MILLIGRAM/SQ. METER, Q2WK
     Route: 041
     Dates: start: 20190417, end: 20191008
  2. PICOSULFATE NA [Concomitant]
     Active Substance: SODIUM PICOSULFATE
     Indication: CONSTIPATION
     Dosage: 15 DROP
     Route: 048
     Dates: start: 20190426
  3. LACTEC [Concomitant]
     Active Substance: CALCIUM CHLORIDE ANHYDROUS\POTASSIUM CHLORIDE\SODIUM CHLORIDE\SODIUM LACTATE
     Indication: FLUID REPLACEMENT
     Dosage: 500 OR 1000 ML
     Route: 042
     Dates: start: 20190423
  4. NIVOLUMAB [Suspect]
     Active Substance: NIVOLUMAB
     Indication: PANCREATIC CARCINOMA
     Dosage: 480 MILLIGRAM, Q4WK
     Route: 041
     Dates: start: 20190417, end: 20191008
  5. METOCLOPRAMIDE. [Concomitant]
     Active Substance: METOCLOPRAMIDE
     Indication: NAUSEA
     Dosage: 5 MILLIGRAM
     Route: 048
     Dates: start: 20190421
  6. LECICARBON [SODIUM BICARBONATE;SODIUM PHOSPHATE MONOBASIC (ANHYDROUS)] [Concomitant]
     Indication: CONSTIPATION
     Dosage: 1 PACKAGE
     Route: 065
     Dates: start: 20190428
  7. OXALIPLATIN. [Suspect]
     Active Substance: OXALIPLATIN
     Indication: PANCREATIC CARCINOMA
     Dosage: 85 MILLIGRAM/SQ. METER, Q2WK
     Route: 041
     Dates: start: 20190417
  8. DAIPHEN [Concomitant]
     Active Substance: SULFAMETHOXAZOLE\TRIMETHOPRIM
     Indication: PRODUCT USED FOR UNKNOWN INDICATION
     Dosage: 1 DOSAGE FORM
     Route: 048
     Dates: start: 20191026, end: 20191105
  9. IRINOTECAN HYDROCHLORIDE. [Suspect]
     Active Substance: IRINOTECAN HYDROCHLORIDE
     Indication: PANCREATIC CARCINOMA
     Dosage: 150 MILLIGRAM/SQ. METER, Q2WK
     Route: 041
     Dates: start: 20190417, end: 20191008
  10. RABEPRAZOLE NA [Concomitant]
     Active Substance: RABEPRAZOLE SODIUM
     Indication: GASTRITIS PROPHYLAXIS
     Dosage: 10 MILLIGRAM
     Route: 048
  11. OXINORM [OXYCODONE HYDROCHLORIDE] [Concomitant]
     Active Substance: OXYCODONE HYDROCHLORIDE
     Indication: CANCER PAIN
     Dosage: 2.5 MILLIGRAM
     Route: 048
  12. DEXAMETHASONE. [Concomitant]
     Active Substance: DEXAMETHASONE
     Indication: DECREASED APPETITE
     Route: 065
  13. ATROPINE SULFATE. [Concomitant]
     Active Substance: ATROPINE SULFATE
     Indication: DIARRHOEA
     Dosage: 0.5 MILLIGRAM
     Route: 042
     Dates: start: 20190417
  14. DECADRON [DEXAMETHASONE SODIUM PHOSPHATE] [Concomitant]
     Indication: VOMITING
     Dosage: 8 MILLIGRAM
     Route: 048
     Dates: start: 20190418
  15. MAGMITT [Concomitant]
     Active Substance: MAGNESIUM OXIDE
     Indication: CONSTIPATION
     Dosage: 990 MILLIGRAM
     Route: 048
  16. KALIMATE [Concomitant]
     Active Substance: CALCIUM POLYSTYRENE SULFONATE
     Indication: HYPERKALAEMIA
     Dosage: 15 GRAM
     Route: 048
     Dates: start: 20190419
  17. CALONAL [Concomitant]
     Active Substance: ACETAMINOPHEN
     Indication: CANCER PAIN
     Dosage: 400 MILLIGRAM
     Route: 048
  18. ATARAX-P [HYDROXYZINE EMBONATE] [Concomitant]
     Indication: VOMITING
     Dosage: 25 MILLIGRAM
     Route: 042
     Dates: start: 20190426
  19. EMEND [Concomitant]
     Active Substance: APREPITANT
     Indication: VOMITING
     Dosage: 125 MILLIGRAM
     Route: 048
     Dates: start: 20190417
  20. NOVAMIN [PROCHLORPERAZINE MALEATE] [Concomitant]
     Indication: NAUSEA
     Dosage: 15 MILLIGRAM
     Route: 048
  21. SENNOSIDE A+B CALCIUM [Concomitant]
     Active Substance: SENNOSIDES A AND B
     Indication: CONSTIPATION
     Dosage: 24 MILLIGRAM
     Route: 048
  22. METOCLOPRAMIDE. [Concomitant]
     Active Substance: METOCLOPRAMIDE
     Indication: VOMITING
     Route: 065
  23. CALCIUM LEVOFOLINATE [Suspect]
     Active Substance: LEVOLEUCOVORIN CALCIUM
     Indication: PANCREATIC CARCINOMA
     Dosage: 200 MILLIGRAM/SQ. METER, Q2WK
     Route: 041
     Dates: start: 20190417
  24. ALOXI [Concomitant]
     Active Substance: PALONOSETRON HYDROCHLORIDE
     Indication: VOMITING
     Dosage: 0.75 MILLIGRAM PER DAY
     Route: 042
     Dates: start: 20190417
  25. OLANZAPINE. [Concomitant]
     Active Substance: OLANZAPINE
     Indication: NAUSEA
     Dosage: 2.5 OR 5 MG
     Route: 048
     Dates: start: 20190422
  26. SYMPROIC [Concomitant]
     Active Substance: NALDEMEDINE
     Indication: CONSTIPATION
     Dosage: 0.2 MILLIGRAM
     Route: 048
     Dates: start: 20190427
  27. PAREPLUS [Concomitant]
     Active Substance: AMINO ACIDS\DEXTROSE\ELECTROLYTES NOS\VITAMINS
     Indication: DECREASED APPETITE
     Dosage: 500 OR 1000 ML
     Route: 042
     Dates: start: 20190426
  28. OXYCODONE [Concomitant]
     Active Substance: OXYCODONE
     Indication: CANCER PAIN
     Dosage: 10 OR 30 MILLIGRAM
     Route: 048
     Dates: start: 20191119
  29. DEXAMETHASONE. [Concomitant]
     Active Substance: DEXAMETHASONE
     Indication: VOMITING
     Dosage: 79.2 MILLIGRAM
     Route: 042
     Dates: start: 20190417

REACTIONS (4)
  - Lung disorder [Recovering/Resolving]
  - Rash [Recovered/Resolved]
  - Malaise [Recovering/Resolving]
  - Cholecystitis [Recovered/Resolved]

NARRATIVE: CASE EVENT DATE: 20191019
